FAERS Safety Report 4500401-7 (Version None)
Quarter: 2004Q3

REPORT INFORMATION
  Report Type: 
  Country: None (occurrence: None)
  Receive Date: 20040928
  Receipt Date: 20040730
  Transmission Date: 20050211
  Serious: No
  Sender: FDA-Public Use
  Company Number: 04P-163-0268591-00

PATIENT
  Age: 83 Year
  Sex: Female
  Weight: 75.7507 kg

DRUGS (4)
  1. HUMIRA [Suspect]
     Indication: RHEUMATOID ARTHRITIS
     Dosage: 40 1 IN 2 WK SUBCUTANEOUS
     Route: 058
     Dates: start: 20040730
  2. CELECOXIB [Concomitant]
  3. FOLIC ACID [Concomitant]
  4. METHOTREXATE SODIUM [Concomitant]

REACTIONS (1)
  - INJECTION SITE PAIN [None]
